FAERS Safety Report 5572131-4 (Version None)
Quarter: 2007Q4

REPORT INFORMATION
  Report Type: 
  Country: None (occurrence: None)
  Receive Date: 20071221
  Receipt Date: 20071210
  Transmission Date: 20080405
  Serious: Yes (Hospitalization, Other)
  Sender: FDA-Public Use
  Company Number: DK-PFIZER INC-2007089683

PATIENT
  Sex: Male

DRUGS (5)
  1. LYRICA [Suspect]
     Indication: NEURALGIA
     Route: 048
  2. OXYCONTIN [Concomitant]
  3. OXYNORM [Concomitant]
  4. PAMOL [Concomitant]
  5. PANTOPRAZOL [Concomitant]

REACTIONS (3)
  - BREAST HYPERPLASIA [None]
  - INFECTION [None]
  - KNEE OPERATION [None]
